FAERS Safety Report 6899397-2 (Version None)
Quarter: 2010Q3

REPORT INFORMATION
  Report Type: 
  Country: None (occurrence: None)
  Receive Date: 20100803
  Receipt Date: 20090509
  Transmission Date: 20110219
  Serious: No
  Sender: FDA-Public Use
  Company Number: US-PFIZER INC-2009177807

PATIENT
  Sex: Male
  Weight: 63.49 kg

DRUGS (9)
  1. FLAGYL [Suspect]
     Indication: CLOSTRIDIAL INFECTION
     Dosage: 500 MG, 3X/DAY
     Route: 048
     Dates: start: 20090218, end: 20090228
  2. HYZAAR [Concomitant]
     Dosage: UNK
  3. CARDURA [Concomitant]
     Dosage: 8 MG, 1X/DAY
  4. PRAVASTATIN [Concomitant]
     Dosage: 40 MG, 1X/DAY
  5. AMBIEN [Concomitant]
     Dosage: UNK
  6. TESTOSTERONE [Concomitant]
  7. TYLENOL [Concomitant]
  8. CALCIUM [Concomitant]
  9. VITAMINS [Concomitant]

REACTIONS (2)
  - DYSGEUSIA [None]
  - DYSPEPSIA [None]
